FAERS Safety Report 6985637-8 (Version None)
Quarter: 2010Q3

REPORT INFORMATION
  Report Type: 
  Country: None (occurrence: None)
  Receive Date: 20100915
  Receipt Date: 20100907
  Transmission Date: 20110219
  Serious: Yes (Other)
  Sender: FDA-Public Use
  Company Number: GXKR2010PL10186

PATIENT
  Sex: Female
  Weight: 63 kg

DRUGS (1)
  1. METHOTREXATE (NGX) [Suspect]
     Indication: POLYARTHRITIS
     Dosage: 15 MG/WEEK
     Route: 048
     Dates: start: 20100201, end: 20100818

REACTIONS (3)
  - DIZZINESS [None]
  - MENTAL IMPAIRMENT [None]
  - PSYCHOMOTOR RETARDATION [None]
